FAERS Safety Report 4413851-4 (Version None)
Quarter: 2004Q3

REPORT INFORMATION
  Report Type: 
  Country: None (occurrence: None)
  Receive Date: 20040728
  Receipt Date: 20040719
  Transmission Date: 20050211
  Serious: Yes (Hospitalization)
  Sender: FDA-Public Use
  Company Number: TPA2004A00680

PATIENT
  Age: 65 Year
  Sex: Male
  Weight: 88.4514 kg

DRUGS (18)
  1. ACTOS [Suspect]
     Indication: DIABETES MELLITUS NON-INSULIN-DEPENDENT
     Dosage: 30 MG, 1 IN 1 D, PER ORAL
     Route: 048
     Dates: start: 20020601
  2. LACTULOSE [Concomitant]
  3. FERROUS GLUCONATE [Concomitant]
  4. PLAVIX [Concomitant]
  5. COREG [Concomitant]
  6. STARLIX [Concomitant]
  7. LIPITOR [Concomitant]
  8. CLONIDINE HCL [Concomitant]
  9. HYDRALAZINE [Concomitant]
  10. ALTACE [Concomitant]
  11. NORVASC [Concomitant]
  12. NITRO-BID (GLYCERYL TRINITRATE) [Concomitant]
  13. ASPIRIN [Concomitant]
  14. PROCRIT (ERYTHROPOIETIN) [Concomitant]
  15. MULTI-VITAMIN [Concomitant]
  16. VITAMIN C (ASCORBIC ACID) [Concomitant]
  17. FUROSEMIDE [Concomitant]
  18. DIATEX (DIAZEPAM) [Concomitant]

REACTIONS (1)
  - DISEASE PROGRESSION [None]
